FAERS Safety Report 24135408 (Version 1)
Quarter: 2024Q3

REPORT INFORMATION
  Report Type: Spontaneous
  Country: US (occurrence: US)
  Receive Date: 20240725
  Receipt Date: 20240725
  Transmission Date: 20241016
  Serious: No
  Sender: JOHNSON AND JOHNSON
  Company Number: US-JNJFOC-20240703350

PATIENT
  Age: 32 Year
  Sex: Female

DRUGS (10)
  1. IMODIUM [Suspect]
     Active Substance: LOPERAMIDE HYDROCHLORIDE
     Indication: Diarrhoea
     Route: 065
  2. TREPROSTINIL DIOLAMINE [Concomitant]
     Active Substance: TREPROSTINIL DIOLAMINE
     Indication: Pulmonary arterial hypertension
     Route: 048
     Dates: start: 20240425, end: 2024
  3. TREPROSTINIL DIOLAMINE [Concomitant]
     Active Substance: TREPROSTINIL DIOLAMINE
     Dosage: 0.875 MG
     Route: 048
     Dates: start: 2024, end: 2024
  4. TREPROSTINIL DIOLAMINE [Concomitant]
     Active Substance: TREPROSTINIL DIOLAMINE
     Dosage: 1MG
     Route: 048
     Dates: start: 202405, end: 202405
  5. TREPROSTINIL DIOLAMINE [Concomitant]
     Active Substance: TREPROSTINIL DIOLAMINE
     Dosage: 1.125 MG
     Route: 048
     Dates: start: 20240523, end: 202406
  6. TREPROSTINIL DIOLAMINE [Concomitant]
     Active Substance: TREPROSTINIL DIOLAMINE
     Dosage: 1.375 MG (1 TABLET OF 1 MG, 0.25 MG AND 0.125 MG EACH),
     Route: 048
     Dates: start: 202406
  7. TREPROSTINIL DIOLAMINE [Concomitant]
     Active Substance: TREPROSTINIL DIOLAMINE
     Route: 048
     Dates: start: 202403
  8. TADALAFIL [Concomitant]
     Active Substance: TADALAFIL
     Indication: Product used for unknown indication
     Route: 065
  9. LETAIRIS [Concomitant]
     Active Substance: AMBRISENTAN
     Indication: Product used for unknown indication
     Route: 065
     Dates: start: 202405
  10. AMBRISENTAN [Concomitant]
     Active Substance: AMBRISENTAN
     Indication: Product used for unknown indication
     Route: 065

REACTIONS (1)
  - Therapeutic product effect decreased [Unknown]
